FAERS Safety Report 9022013 (Version 1)
Quarter: 2013Q1

REPORT INFORMATION
  Report Type: Spontaneous
  Country: US (occurrence: US)
  Receive Date: 20130118
  Receipt Date: 20130118
  Transmission Date: 20140127
  Serious: No
  Sender: FDA-Public Use
  Company Number: US-SANOFI-AVENTIS-2012SA042798

PATIENT
  Age: 61 Year
  Sex: Female
  Weight: 127 kg

DRUGS (11)
  1. LASIX [Suspect]
     Indication: OEDEMA
     Route: 065
  2. HUMIRA [Suspect]
     Indication: RHEUMATOID ARTHRITIS
     Route: 065
     Dates: start: 2010
  3. LEVOTHYROXINE [Concomitant]
     Indication: THYROID DISORDER
  4. LISINOPRIL [Concomitant]
     Indication: HYPERTENSION
  5. SIMVASTATIN [Concomitant]
     Indication: BLOOD CHOLESTEROL INCREASED
  6. ASCORBIC ACID [Concomitant]
     Indication: VITAMIN SUPPLEMENTATION
  7. POTASSIUM [Concomitant]
     Indication: MINERAL SUPPLEMENTATION
  8. PARACETAMOL [Concomitant]
     Indication: ARTHRITIS
  9. GLUCOSAMINE [Concomitant]
     Indication: RHEUMATOID ARTHRITIS
  10. ERGOCALCIFEROL [Concomitant]
     Indication: VITAMIN SUPPLEMENTATION
  11. VITAMIN E [Concomitant]
     Indication: VITAMIN SUPPLEMENTATION

REACTIONS (3)
  - Weight increased [Unknown]
  - Joint swelling [Recovered/Resolved]
  - Drug dose omission [Unknown]
